FAERS Safety Report 5465652-6 (Version None)
Quarter: 2007Q3

REPORT INFORMATION
  Report Type: 
  Country: None (occurrence: None)
  Receive Date: 20070919
  Receipt Date: 20070919
  Transmission Date: 20080115
  Serious: Yes (Hospitalization)
  Sender: FDA-Public Use
  Company Number: None

PATIENT
  Age: 60 Year
  Sex: Female

DRUGS (2)
  1. QUETIAPINE FUMARATE [Suspect]
     Indication: SCHIZOAFFECTIVE DISORDER
     Dosage: 800 MG/D, ORAL
     Route: 048
  2. VALPROIC ACID [Suspect]
     Indication: PSYCHOTIC DISORDER
     Dosage: 900 MG/D, ORAL
     Route: 048

REACTIONS (1)
  - TORTICOLLIS [None]
